FAERS Safety Report 6189751-9 (Version None)
Quarter: 2009Q2

REPORT INFORMATION
  Report Type: 
  Country: None (occurrence: None)
  Receive Date: 20090514
  Receipt Date: 20090504
  Transmission Date: 20091009
  Serious: Yes (Hospitalization)
  Sender: FDA-Public Use
  Company Number: US-JNJFOC-20090500444

PATIENT
  Age: 5 Year

DRUGS (2)
  1. PARACETAMOL [Suspect]
  2. PARACETAMOL [Suspect]
     Indication: PYREXIA
     Dosage: ^THERAPEUTIC^, X 7 DAYS

REACTIONS (4)
  - ENCEPHALOPATHY [None]
  - HEPATIC NECROSIS [None]
  - JAUNDICE [None]
  - PROTHROMBIN LEVEL INCREASED [None]
